APPROVED DRUG PRODUCT: MELPHALAN HYDROCHLORIDE
Active Ingredient: MELPHALAN HYDROCHLORIDE
Strength: EQ 50MG BASE/VIAL
Dosage Form/Route: INJECTABLE;INJECTION
Application: A210947 | Product #001
Applicant: NOVAST LABORATORIES LTD
Approved: Feb 18, 2020 | RLD: No | RS: No | Type: DISCN